APPROVED DRUG PRODUCT: PERCOCET
Active Ingredient: ACETAMINOPHEN; OXYCODONE HYDROCHLORIDE
Strength: 650MG;10MG
Dosage Form/Route: TABLET;ORAL
Application: A040341 | Product #002
Applicant: VINTAGE PHARMACEUTICALS LLC
Approved: Jul 26, 1999 | RLD: No | RS: No | Type: DISCN